FAERS Safety Report 5365511-3 (Version None)
Quarter: 2007Q2

REPORT INFORMATION
  Report Type: 
  Country: None (occurrence: None)
  Receive Date: 20070621
  Receipt Date: 20070619
  Transmission Date: 20071010
  Serious: Yes (Other)
  Sender: FDA-Public Use
  Company Number: A0652681A

PATIENT
  Sex: Female

DRUGS (6)
  1. ADVAIR DISKUS 100/50 [Suspect]
     Indication: ASTHMA
     Dosage: 1PUFF TWICE PER DAY
     Route: 055
     Dates: start: 20050101
  2. PROVENTIL-HFA [Concomitant]
  3. SINGULAIR [Concomitant]
  4. LORAZEPAM [Concomitant]
  5. ALBUTEROL [Concomitant]
  6. PREDNISONE TAB [Concomitant]

REACTIONS (1)
  - CHEST PAIN [None]
